FAERS Safety Report 21526622 (Version 4)
Quarter: 2022Q4

REPORT INFORMATION
  Report Type: Spontaneous
  Country: US (occurrence: US)
  Receive Date: 20221031
  Receipt Date: 20221202
  Transmission Date: 20230113
  Serious: No
  Sender: FDA-Public Use
  Company Number: US-PFIZER INC-202201222959

PATIENT
  Age: 72 Year
  Sex: Male

DRUGS (1)
  1. GENOTROPIN [Suspect]
     Active Substance: SOMATROPIN
     Indication: Hormone therapy
     Dosage: 0.4MG PER DAY, ONCE EVERY EVENING

REACTIONS (3)
  - Wrong technique in device usage process [Unknown]
  - Poor quality device used [Unknown]
  - Device failure [Unknown]
